FAERS Safety Report 4615901-9 (Version None)
Quarter: 2005Q1

REPORT INFORMATION
  Report Type: 
  Country: None (occurrence: None)
  Receive Date: 20050318
  Receipt Date: 20050311
  Transmission Date: 20050727
  Serious: Yes (Death, Other)
  Sender: FDA-Public Use
  Company Number: 2005-00884

PATIENT
  Age: 67 Year
  Sex: Male

DRUGS (4)
  1. COLCHICINE (WATSON LABORATORIES) (COLCHICINE)TABLET, 0.6MG [Suspect]
     Indication: RENAL AMYLOIDOSIS
     Dosage: 0.5 MG, BID, ORAL
     Route: 048
  2. CLARITHROMYCIN [Suspect]
     Indication: UPPER RESPIRATORY TRACT INFECTION
     Dosage: 500 MG, BID
  3. ERYTHROPOIETIN (ERYTHROPOIETIN) [Concomitant]
  4. CALCIUM GLUCONATE [Concomitant]

REACTIONS (2)
  - DRUG INTERACTION POTENTIATION [None]
  - DRUG TOXICITY [None]
